FAERS Safety Report 6242468-4 (Version None)
Quarter: 2009Q2

REPORT INFORMATION
  Report Type: 
  Country: None (occurrence: None)
  Receive Date: 20090622
  Receipt Date: 20090622
  Transmission Date: 20091009
  Serious: Yes (Other)
  Sender: FDA-Public Use
  Company Number: None

PATIENT
  Age: 57 Year
  Sex: Female
  Weight: 67.1324 kg

DRUGS (2)
  1. ZICAM NASAL SWABS MATRIXX INITIATIVE [Suspect]
     Indication: NASOPHARYNGITIS
     Dates: start: 20081108, end: 20081115
  2. ZICAM NASAL SWABS MATRIXX INITIATIVE [Suspect]
     Indication: NASOPHARYNGITIS
     Dates: start: 20081217, end: 20081222

REACTIONS (2)
  - AGEUSIA [None]
  - ANOSMIA [None]
